FAERS Safety Report 12320674 (Version 1)
Quarter: 2016Q2

REPORT INFORMATION
  Report Type: Report from Study
  Country: CN (occurrence: CN)
  Receive Date: 20160429
  Receipt Date: 20160429
  Transmission Date: 20160815
  Serious: Yes (Other)
  Sender: FDA-Public Use
  Company Number: CN-GILEAD-2016-0211355

PATIENT

DRUGS (3)
  1. ADEFOVIR DIPIVOXIL. [Suspect]
     Active Substance: ADEFOVIR DIPIVOXIL
     Indication: CHRONIC HEPATITIS B
     Route: 065
  2. TELBIVUDINE [Suspect]
     Active Substance: TELBIVUDINE
     Indication: ANTIVIRAL TREATMENT
     Route: 065
  3. LAMIVUDINE. [Suspect]
     Active Substance: LAMIVUDINE
     Indication: ANTIVIRAL TREATMENT
     Route: 065

REACTIONS (2)
  - Multiple-drug resistance [Unknown]
  - Pathogen resistance [Unknown]
